FAERS Safety Report 10480235 (Version 1)
Quarter: 2014Q3

REPORT INFORMATION
  Report Type: Spontaneous
  Country: FR (occurrence: FR)
  Receive Date: 20140929
  Receipt Date: 20140929
  Transmission Date: 20150326
  Serious: Yes (Death, Other)
  Sender: FDA-Public Use
  Company Number: FR-MERCK-1409FRA011073

PATIENT
  Age: 69 Year
  Sex: Female
  Weight: 69 kg

DRUGS (8)
  1. REBETOL [Suspect]
     Active Substance: RIBAVIRIN
     Dosage: 200 MG, BID
     Dates: start: 20110701, end: 20110712
  2. REBETOL [Suspect]
     Active Substance: RIBAVIRIN
     Dosage: 800 MG, BID
     Dates: start: 20110324, end: 20110701
  3. VIRAFERONPEG [Suspect]
     Active Substance: PEGINTERFERON ALFA-2B
     Indication: HEPATITIS C
     Dosage: 80 MICROGRAM, QW
     Dates: start: 20110324, end: 20110808
  4. PEGASYS [Suspect]
     Active Substance: PEGINTERFERON ALFA-2A
     Indication: HEPATITIS C
     Dosage: 180 MICROGRAM, QW
     Dates: start: 20091007, end: 20100908
  5. REBETOL [Suspect]
     Active Substance: RIBAVIRIN
     Dosage: 200 MG, TID
     Dates: start: 20110712, end: 20110808
  6. COPEGUS [Suspect]
     Active Substance: RIBAVIRIN
     Indication: HEPATITIS C
     Dosage: 200 MG, QW
     Dates: start: 20091007, end: 20100908
  7. VIRAFERONPEG [Suspect]
     Active Substance: PEGINTERFERON ALFA-2B
     Dosage: 64 MICROGRAM, QW
     Dates: start: 20110808, end: 20111208
  8. REBETOL [Suspect]
     Active Substance: RIBAVIRIN
     Dosage: 200 MG, BID
     Dates: start: 20110808, end: 20111208

REACTIONS (2)
  - Heart valve operation [Fatal]
  - General physical health deterioration [Fatal]

NARRATIVE: CASE EVENT DATE: 20140910
